FAERS Safety Report 5022548-1 (Version None)
Quarter: 2006Q2

REPORT INFORMATION
  Report Type: 
  Country: None (occurrence: None)
  Receive Date: 20060605
  Receipt Date: 20060524
  Transmission Date: 20061013
  Serious: Yes (Other)
  Sender: FDA-Public Use
  Company Number: JP200605005578

PATIENT
  Age: 59 Year
  Sex: Male

DRUGS (2)
  1. GEMZAR [Suspect]
     Indication: LUNG NEOPLASM MALIGNANT
     Dosage: OTHER, INTRAVENOUS
     Route: 042
     Dates: start: 20060401
  2. NAVELBINE ^ASTA MEDICA^ (VINORELBINE DITARTRATE) [Concomitant]

REACTIONS (2)
  - PLATELET COUNT DECREASED [None]
  - PLATELET COUNT INCREASED [None]
